FAERS Safety Report 14326857 (Version 1)
Quarter: 2017Q4

REPORT INFORMATION
  Report Type: Report from Study
  Country: US (occurrence: US)
  Receive Date: 20171227
  Receipt Date: 20171227
  Transmission Date: 20180321
  Serious: Yes (Death, Hospitalization, Other)
  Sender: FDA-Public Use
  Company Number: US-ROCHE-2044249

PATIENT
  Age: 63 Year
  Sex: Female

DRUGS (5)
  1. RITUXAN [Suspect]
     Active Substance: RITUXIMAB
     Indication: PEMPHIGOID
     Dosage: DATE OF LAST OF INFUSION:29/JUN/2015
     Route: 042
  2. MYCOPHENOLATE MOFETIL. [Suspect]
     Active Substance: MYCOPHENOLATE MOFETIL
     Indication: PRODUCT USED FOR UNKNOWN INDICATION
     Route: 065
  3. SINGULAIR [Concomitant]
     Active Substance: MONTELUKAST SODIUM
  4. XOLAIR [Suspect]
     Active Substance: OMALIZUMAB
     Indication: PRODUCT USED FOR UNKNOWN INDICATION
     Route: 058
  5. STELARA [Suspect]
     Active Substance: USTEKINUMAB
     Indication: PSORIATIC ARTHROPATHY
     Dosage: 1 DOSE
     Route: 065

REACTIONS (8)
  - Abdominal pain [Unknown]
  - Acute respiratory distress syndrome [Fatal]
  - Off label use [Unknown]
  - Osteomyelitis [Unknown]
  - Pemphigoid [Not Recovered/Not Resolved]
  - Intentional product use issue [Unknown]
  - Escherichia sepsis [Recovered/Resolved]
  - Immunodeficiency [Fatal]

NARRATIVE: CASE EVENT DATE: 201504
